FAERS Safety Report 11073768 (Version 1)
Quarter: 2015Q2

REPORT INFORMATION
  Report Type: Spontaneous
  Country: US (occurrence: US)
  Receive Date: 20150428
  Receipt Date: 20150428
  Transmission Date: 20150821
  Serious: Yes (Life-Threatening, Hospitalization, Other)
  Sender: FDA-Public Use
  Company Number: PHEH2015US008113

PATIENT
  Age: 67 Year
  Sex: Male
  Weight: 59 kg

DRUGS (1)
  1. COSENTYX [Suspect]
     Active Substance: SECUKINUMAB
     Indication: PSORIASIS
     Dosage: 300 MG, QW
     Route: 058
     Dates: start: 20150410

REACTIONS (5)
  - Haematemesis [Recovering/Resolving]
  - Haematochezia [Recovering/Resolving]
  - Apparent death [Unknown]
  - Haemorrhage [Recovering/Resolving]
  - International normalised ratio increased [Unknown]

NARRATIVE: CASE EVENT DATE: 20150411
